FAERS Safety Report 11253340 (Version 1)
Quarter: 2015Q3

REPORT INFORMATION
  Report Type: Spontaneous
  Country: US (occurrence: US)
  Receive Date: 20150709
  Receipt Date: 20150709
  Transmission Date: 20151125
  Serious: No
  Sender: FDA-Public Use
  Company Number: US-TEVA-499236USA

PATIENT
  Sex: Female

DRUGS (2)
  1. POTASSIUM [Concomitant]
     Active Substance: POTASSIUM
  2. TRAMADOL. [Suspect]
     Active Substance: TRAMADOL
     Indication: PAIN

REACTIONS (3)
  - Malaise [Recovered/Resolved]
  - Nausea [Unknown]
  - Vomiting [Unknown]
